FAERS Safety Report 7176671-6 (Version None)
Quarter: 2010Q4

REPORT INFORMATION
  Report Type: 
  Country: None (occurrence: None)
  Receive Date: 20101215
  Receipt Date: 20101215
  Transmission Date: 20110411
  Serious: Yes (Death, Other)
  Sender: FDA-Public Use
  Company Number: None

PATIENT
  Age: 86 Year
  Sex: Male
  Weight: 58.9676 kg

DRUGS (1)
  1. TYGASCIL [Suspect]

REACTIONS (5)
  - BLOOD PRESSURE FLUCTUATION [None]
  - DRUG PRESCRIBING ERROR [None]
  - DRUG RESISTANCE [None]
  - LUNG INFECTION [None]
  - PNEUMONIA [None]
